FAERS Safety Report 8271246-X (Version None)
Quarter: 2012Q2

REPORT INFORMATION
  Report Type: 
  Country: None (occurrence: None)
  Receive Date: 20120410
  Receipt Date: 20120405
  Transmission Date: 20120825
  Serious: Yes (Hospitalization, Other)
  Sender: FDA-Public Use
  Company Number: US-PFIZER INC-2012046189

PATIENT
  Sex: Female
  Weight: 81.179 kg

DRUGS (4)
  1. CADUET [Suspect]
     Indication: BLOOD CHOLESTEROL INCREASED
  2. CADUET [Suspect]
     Indication: HYPERTENSION
     Dosage: [AMLODIPINE 5MG]/[ATORVASTATIN 10 MG], 1X/DAY
     Route: 048
     Dates: start: 20070101
  3. CADUET [Suspect]
     Indication: HYPERLIPIDAEMIA
  4. PREMPRO [Concomitant]
     Indication: HOT FLUSH
     Dosage: UNK

REACTIONS (3)
  - CEREBROVASCULAR ACCIDENT [None]
  - CEREBRAL HAEMORRHAGE [None]
  - HYPOAESTHESIA [None]
